FAERS Safety Report 6149013-2 (Version None)
Quarter: 2009Q2

REPORT INFORMATION
  Report Type: 
  Country: None (occurrence: None)
  Receive Date: 20090407
  Receipt Date: 20090331
  Transmission Date: 20091009
  Serious: Yes (Other)
  Sender: FDA-Public Use
  Company Number: 189843USA

PATIENT
  Age: 16 Year
  Sex: Male

DRUGS (1)
  1. CLARAVIS [Suspect]
     Indication: ACNE
     Dosage: 60 MG, (30 MG,2 IN 1 D),ORAL
     Route: 048
     Dates: start: 20080801, end: 20090301

REACTIONS (2)
  - ANXIETY [None]
  - SUICIDAL IDEATION [None]
